FAERS Safety Report 6387929-2 (Version None)
Quarter: 2009Q4

REPORT INFORMATION
  Report Type: 
  Country: None (occurrence: None)
  Receive Date: 20091005
  Receipt Date: 20090925
  Transmission Date: 20100525
  Serious: Yes (Other)
  Sender: FDA-Public Use
  Company Number: NL-NOVOPROD-291928

PATIENT
  Age: 52 Year
  Sex: Female

DRUGS (2)
  1. NOVORAPID [Suspect]
     Indication: TYPE 1 DIABETES MELLITUS
     Route: 058
  2. FLUCLOXACILLINE                    /00239101/ [Concomitant]
     Indication: DRUG USE FOR UNKNOWN INDICATION
     Dosage: 500MG, TID
     Dates: start: 20090914

REACTIONS (1)
  - INJECTION SITE ABSCESS [None]
